FAERS Safety Report 8130310-6 (Version None)
Quarter: 2012Q1

REPORT INFORMATION
  Report Type: 
  Country: None (occurrence: None)
  Receive Date: 20120210
  Receipt Date: 20120207
  Transmission Date: 20120608
  Serious: Yes (Other)
  Sender: FDA-Public Use
  Company Number: PHEH2006US13529

PATIENT
  Sex: Female
  Weight: 75 kg

DRUGS (12)
  1. CHEMOTHERAPEUTICS,OTHER [Concomitant]
     Dosage: UNK UKN, UNK
     Dates: start: 20030101
  2. VELCADE [Concomitant]
  3. AREDIA [Suspect]
     Dosage: UNK UKN, UNK
  4. ALLEGRA [Concomitant]
  5. FLONASE [Concomitant]
  6. CALCIUM [Concomitant]
  7. ATIVAN [Concomitant]
  8. ZOMETA [Suspect]
     Indication: MULTIPLE MYELOMA
     Dosage: UNK UKN, EVERY 4 WEEKS
     Route: 042
     Dates: start: 20030101
  9. NEUPOGEN [Concomitant]
     Dosage: UNK UKN, UNK
  10. DECADRON [Concomitant]
     Dosage: UNK UKN, UNK
  11. VITAMIN TAB [Concomitant]
  12. THALIDOMIDE [Concomitant]
     Dosage: UNK UKN, UNK

REACTIONS (40)
  - COMPRESSION FRACTURE [None]
  - DIVERTICULUM INTESTINAL [None]
  - MASTICATION DISORDER [None]
  - JAW DISORDER [None]
  - EOSINOPHILIA [None]
  - PYREXIA [None]
  - COLON ADENOMA [None]
  - RECTOCELE [None]
  - HYPERCHOLESTEROLAEMIA [None]
  - MUSCLE SPASMS [None]
  - OSTEONECROSIS OF JAW [None]
  - PLATELET COUNT INCREASED [None]
  - CORNEAL OPACITY [None]
  - PAIN IN EXTREMITY [None]
  - OVARIAN FAILURE [None]
  - RECTAL POLYP [None]
  - OSTEOPOROSIS [None]
  - NAUSEA [None]
  - ACUTE SINUSITIS [None]
  - BONE DISORDER [None]
  - ASTHENIA [None]
  - MOUTH ULCERATION [None]
  - QRS AXIS ABNORMAL [None]
  - ARTHRALGIA [None]
  - CORONARY ARTERY DISEASE [None]
  - EYE BURNS [None]
  - VENOUS INSUFFICIENCY [None]
  - GINGIVAL DISORDER [None]
  - ANORECTAL DISORDER [None]
  - FAECAL INCONTINENCE [None]
  - ATELECTASIS [None]
  - DYSPNOEA [None]
  - PAIN IN JAW [None]
  - MEGAKARYOCYTES DECREASED [None]
  - OSTEOPENIA [None]
  - OESOPHAGITIS [None]
  - PANCYTOPENIA [None]
  - IMPAIRED HEALING [None]
  - INSPIRATORY CAPACITY DECREASED [None]
  - OEDEMA PERIPHERAL [None]
